FAERS Safety Report 8451266-2 (Version None)
Quarter: 2012Q2

REPORT INFORMATION
  Report Type: 
  Country: None (occurrence: None)
  Receive Date: 20120620
  Receipt Date: 20120502
  Transmission Date: 20120825
  Serious: No
  Sender: FDA-Public Use
  Company Number: US-VERTEX PHARMACEUTICALS INC.-AE-2012-002112

PATIENT
  Sex: Male
  Weight: 113.5 kg

DRUGS (3)
  1. INCIVEK [Suspect]
     Indication: HEPATITIS C
     Route: 048
     Dates: start: 20120202, end: 20120430
  2. PEGASYS [Concomitant]
     Indication: HEPATITIS C
     Route: 058
     Dates: start: 20120202
  3. RIBAVIRIN [Concomitant]
     Indication: HEPATITIS C
     Route: 048
     Dates: start: 20120202

REACTIONS (7)
  - INSOMNIA [None]
  - MOUTH HAEMORRHAGE [None]
  - ANORECTAL DISCOMFORT [None]
  - PRURITUS GENERALISED [None]
  - PLATELET COUNT DECREASED [None]
  - RASH [None]
  - FREQUENT BOWEL MOVEMENTS [None]
